FAERS Safety Report 7812938-3 (Version None)
Quarter: 2011Q4

REPORT INFORMATION
  Report Type: 
  Country: None (occurrence: None)
  Receive Date: 20111013
  Receipt Date: 20111007
  Transmission Date: 20120403
  Serious: Yes (Other)
  Sender: FDA-Public Use
  Company Number: FR-CEPHALON-2011005351

PATIENT
  Sex: Female

DRUGS (4)
  1. HYDROMORPHONE HCL [Suspect]
     Route: 048
  2. ACTIQ [Suspect]
     Route: 002
  3. FENTANYL [Suspect]
     Route: 062
  4. MORPHINE [Suspect]

REACTIONS (2)
  - PRINZMETAL ANGINA [None]
  - ARRHYTHMIA SUPRAVENTRICULAR [None]
